FAERS Safety Report 9443482 (Version 1)
Quarter: 2013Q3

REPORT INFORMATION
  Report Type: Spontaneous
  Country: JP (occurrence: JP)
  Receive Date: 20130806
  Receipt Date: 20130806
  Transmission Date: 20140515
  Serious: Yes (Hospitalization, Other)
  Sender: FDA-Public Use
  Company Number: PHHY2013JP084364

PATIENT
  Sex: Male

DRUGS (2)
  1. DIOVAN [Suspect]
     Route: 048
     Dates: start: 20091026, end: 20091216
  2. CONIEL [Concomitant]
     Route: 048
     Dates: start: 20091026, end: 20091216

REACTIONS (4)
  - Cardiac disorder [Unknown]
  - Arrhythmia [Not Recovered/Not Resolved]
  - Blood pressure increased [Unknown]
  - Drug ineffective [Unknown]
